FAERS Safety Report 4959694-4 (Version None)
Quarter: 2006Q1

REPORT INFORMATION
  Report Type: 
  Country: None (occurrence: None)
  Receive Date: 20060328
  Receipt Date: 20060314
  Transmission Date: 20060701
  Serious: Yes (Disabling)
  Sender: FDA-Public Use
  Company Number: 2006035958

PATIENT
  Age: 41 Year
  Sex: Male
  Weight: 83.5 kg

DRUGS (3)
  1. ZOLOFT [Suspect]
     Indication: ANXIETY
     Dosage: 20 MG (20 MG, 1 IN 1 D), ORAL
     Route: 048
     Dates: end: 20050101
  2. ANDROGEL [Suspect]
     Indication: BLOOD TESTOSTERONE DECREASED
     Dosage: ONE PACKET (1 IN 1 D), TRANSDERMAL
     Route: 062
     Dates: start: 20051001, end: 20051201
  3. ANDROGEL [Suspect]
     Indication: HYPOGONADISM
     Dosage: ONE PACKET (1 IN 1 D), TRANSDERMAL
     Route: 062
     Dates: start: 20051001, end: 20051201

REACTIONS (4)
  - ABNORMAL BEHAVIOUR [None]
  - BLOOD TESTOSTERONE DECREASED [None]
  - IMPAIRED WORK ABILITY [None]
  - PERSONALITY CHANGE [None]
